FAERS Safety Report 25251623 (Version 1)
Quarter: 2025Q2

REPORT INFORMATION
  Report Type: Spontaneous
  Country: ES (occurrence: ES)
  Receive Date: 20250429
  Receipt Date: 20250429
  Transmission Date: 20250716
  Serious: Yes (Other)
  Sender: ALCON
  Company Number: None

PATIENT

DRUGS (1)
  1. CYCLOPENTOLATE HYDROCHLORIDE [Suspect]
     Active Substance: CYCLOPENTOLATE HYDROCHLORIDE
     Indication: Ophthalmological examination
     Dates: start: 20250326, end: 20250326

REACTIONS (1)
  - Strabismus [Not Recovered/Not Resolved]

NARRATIVE: CASE EVENT DATE: 20250327
